FAERS Safety Report 8392385-9 (Version None)
Quarter: 2012Q2

REPORT INFORMATION
  Report Type: 
  Country: None (occurrence: None)
  Receive Date: 20120529
  Receipt Date: 20120523
  Transmission Date: 20120825
  Serious: Yes (Hospitalization)
  Sender: FDA-Public Use
  Company Number: US-ACTELION-A-US2012-65988

PATIENT

DRUGS (4)
  1. LETAIRIS [Concomitant]
  2. COUMADIN [Concomitant]
  3. VENTAVIS [Suspect]
     Indication: PULMONARY ARTERIAL HYPERTENSION
     Dosage: UNK
     Route: 055
     Dates: start: 20081117
  4. ADCIRCA [Concomitant]

REACTIONS (5)
  - HAEMOPTYSIS [None]
  - PNEUMONIA [None]
  - DYSPNOEA [None]
  - PULMONARY HAEMORRHAGE [None]
  - CONDITION AGGRAVATED [None]
